FAERS Safety Report 6342147-9 (Version None)
Quarter: 2009Q3

REPORT INFORMATION
  Report Type: 
  Country: None (occurrence: None)
  Receive Date: 20090903
  Receipt Date: 20090903
  Transmission Date: 20100115
  Serious: Yes (Life-Threatening, Hospitalization, Disabling, Other)
  Sender: FDA-Public Use
  Company Number: None

PATIENT
  Sex: Female
  Weight: 39.0093 kg

DRUGS (1)
  1. DIGITEK 0.125 BERTEK PHARMACEUTICALS [Suspect]
     Indication: HEART RATE IRREGULAR
     Dosage: 1 TABLET DAILY  (FILLED 2/22/08; ORIGINAL 10/15/07)

REACTIONS (2)
  - HEART RATE DECREASED [None]
  - PRODUCT QUALITY ISSUE [None]
